FAERS Safety Report 10276341 (Version 1)
Quarter: 2014Q3

REPORT INFORMATION
  Report Type: Spontaneous
  Country: US (occurrence: US)
  Receive Date: 20140703
  Receipt Date: 20140703
  Transmission Date: 20150326
  Serious: Yes (Hospitalization, Other)
  Sender: FDA-Public Use
  Company Number: US-ACTAVIS-2014-14268

PATIENT
  Age: 69 Year
  Sex: Male

DRUGS (3)
  1. PROPAFENONE (WATSON LABORATORIES) [Suspect]
     Active Substance: PROPAFENONE
     Indication: ATRIAL FIBRILLATION
     Dosage: 325 MG, BID
     Route: 065
  2. ASPIRIN. [Concomitant]
     Active Substance: ASPIRIN
     Indication: PRODUCT USED FOR UNKNOWN INDICATION
     Dosage: 81 MG, UNKNOWN
     Route: 065
  3. MIRTAZAPINE (WATSON LABORATORIES) [Interacting]
     Active Substance: MIRTAZAPINE
     Indication: INSOMNIA
     Dosage: 15 MG, SINGLE
     Route: 065

REACTIONS (11)
  - Drug interaction [Recovered/Resolved]
  - Bradycardia [Recovered/Resolved]
  - Bundle branch block right [Recovered/Resolved]
  - Drug level increased [Recovered/Resolved]
  - Electrocardiogram QRS complex prolonged [Recovered/Resolved]
  - Sinus bradycardia [None]
  - Convulsion [Recovered/Resolved]
  - Electrocardiogram QRS complex shortened [None]
  - Hypotension [Recovered/Resolved]
  - Encephalopathy [None]
  - Electrocardiogram QT prolonged [Recovered/Resolved]
